FAERS Safety Report 11682652 (Version 8)
Quarter: 2016Q4

REPORT INFORMATION
  Report Type: Report from Study
  Country: JP (occurrence: JP)
  Receive Date: 20151029
  Receipt Date: 20161222
  Transmission Date: 20170206
  Serious: Yes (Death, Life-Threatening, Hospitalization, Disabling)
  Sender: FDA-Public Use
  Company Number: JP-EISAI MEDICAL RESEARCH-EC-2015-011616

PATIENT
  Age: 66 Year
  Sex: Male
  Weight: 56 kg

DRUGS (18)
  1. CARBOPLATIN. [Suspect]
     Active Substance: CARBOPLATIN
     Indication: THYROID DISORDER
     Dosage: UNKNOWN
     Route: 065
  2. MAGMITT [Concomitant]
     Active Substance: MAGNESIUM OXIDE
  3. ARCRANE [Concomitant]
  4. POSTERISAN [Concomitant]
     Active Substance: LIDOCAINE
  5. AZILVA [Concomitant]
     Active Substance: AZILSARTAN KAMEDOXOMIL
  6. LENVIMA [Suspect]
     Active Substance: LENVATINIB
     Route: 048
     Dates: start: 20150809, end: 20151024
  7. LENVIMA [Suspect]
     Active Substance: LENVATINIB
     Dosage: WEEK 24 - WEEK 28
     Route: 048
     Dates: start: 20151229, end: 201602
  8. REBAMIPIDE [Concomitant]
     Active Substance: REBAMIPIDE
  9. LENVIMA [Suspect]
     Active Substance: LENVATINIB
     Dosage: WEEK 15
     Route: 048
     Dates: start: 20151029, end: 20151102
  10. LENVIMA [Suspect]
     Active Substance: LENVATINIB
     Dosage: WEEK 20
     Route: 048
     Dates: start: 20151128, end: 20151228
  11. AZUNOL GARGLE [Concomitant]
  12. HIRUDOID [Concomitant]
     Active Substance: GLYCOSAMINOGLYCANS
  13. LENVIMA [Suspect]
     Active Substance: LENVATINIB
     Dosage: WEEK 17
     Route: 048
     Dates: start: 20151111, end: 20151127
  14. LOXOPROFEN [Concomitant]
     Active Substance: LOXOPROFEN
  15. LENVIMA [Suspect]
     Active Substance: LENVATINIB
     Indication: ANAPLASTIC THYROID CANCER
     Route: 048
     Dates: start: 20150721, end: 20150804
  16. ENSURE H [Concomitant]
  17. PACLITAXEL. [Suspect]
     Active Substance: PACLITAXEL
     Indication: THYROID DISORDER
     Dosage: UNKNOWN
     Route: 065
  18. LEVOTHYROXINE SODIUM HYDRATE [Concomitant]
     Active Substance: LEVOTHYROXINE SODIUM

REACTIONS (5)
  - Haemorrhoidal haemorrhage [Recovering/Resolving]
  - Anal ulcer [Recovering/Resolving]
  - Anal fissure [Recovering/Resolving]
  - Malignant neoplasm progression [Fatal]
  - Arterial haemorrhage [Recovering/Resolving]

NARRATIVE: CASE EVENT DATE: 201510
